FAERS Safety Report 17689414 (Version 6)
Quarter: 2021Q2

REPORT INFORMATION
  Report Type: Report from Study
  Country: US (occurrence: US)
  Receive Date: 20200421
  Receipt Date: 20210405
  Transmission Date: 20210716
  Serious: Yes (Hospitalization, Other)
  Sender: FDA-Public Use
  Company Number: US-INSMED, INC.-US-INS-20-00465

PATIENT
  Sex: Female

DRUGS (3)
  1. TETRACYCLINE [Suspect]
     Active Substance: TETRACYCLINE
     Indication: PRODUCT USED FOR UNKNOWN INDICATION
     Route: 042
  2. ARIKAYCE [Suspect]
     Active Substance: AMIKACIN
     Indication: MYCOBACTERIAL INFECTION
     Dosage: 590 MILLIGRAM
     Route: 055
     Dates: start: 20200207, end: 2020
  3. ARIKAYCE [Suspect]
     Active Substance: AMIKACIN
     Dosage: 590 MILLIGRAM, EVERY OTHER DAY
     Route: 055
     Dates: start: 2020

REACTIONS (11)
  - Central venous catheterisation [Unknown]
  - Drug ineffective [Unknown]
  - Off label use [Unknown]
  - Lower limb fracture [Unknown]
  - Drug interaction [Unknown]
  - Rib fracture [Unknown]
  - Cough [Not Recovered/Not Resolved]
  - Diarrhoea [Unknown]
  - Cardiac failure congestive [Unknown]
  - Mycobacterial infection [Not Recovered/Not Resolved]
  - Bronchospasm [Not Recovered/Not Resolved]

NARRATIVE: CASE EVENT DATE: 2020
